FAERS Safety Report 23872554 (Version 1)
Quarter: 2024Q2

REPORT INFORMATION
  Report Type: Spontaneous
  Country: US (occurrence: US)
  Receive Date: 20240520
  Receipt Date: 20240520
  Transmission Date: 20240716
  Serious: No
  Sender: FDA-Public Use
  Company Number: US-ViiV Healthcare Limited-111339

PATIENT
  Age: 44 Year
  Sex: Male

DRUGS (2)
  1. RILPIVIRINE [Suspect]
     Active Substance: RILPIVIRINE
     Indication: Product used for unknown indication
     Dosage: UNK UNK, Q2M,600/900 MG
     Route: 065
     Dates: start: 20221107
  2. CABOTEGRAVIR [Suspect]
     Active Substance: CABOTEGRAVIR
     Indication: Product used for unknown indication
     Dosage: UNK UNK, Q2M,600/900 MG
     Route: 065
     Dates: start: 20221107

REACTIONS (6)
  - Pain [Recovered/Resolved]
  - Flushing [Recovered/Resolved]
  - Vasodilatation [Recovered/Resolved]
  - Pain in extremity [Recovered/Resolved]
  - Feeling abnormal [Recovered/Resolved]
  - Blood pressure increased [Recovered/Resolved]

NARRATIVE: CASE EVENT DATE: 20240503
